FAERS Safety Report 18967074 (Version 4)
Quarter: 2021Q2

REPORT INFORMATION
  Report Type: Report from Study
  Country: US (occurrence: US)
  Receive Date: 20210304
  Receipt Date: 20210403
  Transmission Date: 20210717
  Serious: Yes (Death, Hospitalization, Other)
  Sender: FDA-Public Use
  Company Number: US-UNITED THERAPEUTICS-UNT-2021-003485

PATIENT
  Age: 72 Year
  Sex: Male

DRUGS (3)
  1. ORAL TREPROSTINIL [Suspect]
     Active Substance: TREPROSTINIL
     Dosage: 2 MG, TID
     Route: 048
     Dates: end: 202102
  2. ORENITRAM [Suspect]
     Active Substance: TREPROSTINIL
     Indication: PULMONARY ARTERIAL HYPERTENSION
     Dosage: UNK
     Route: 048
  3. ORAL TREPROSTINIL [Suspect]
     Active Substance: TREPROSTINIL
     Indication: PULMONARY ARTERIAL HYPERTENSION
     Dosage: UNK
     Route: 048
     Dates: start: 20201103

REACTIONS (5)
  - Renal failure [Fatal]
  - Right ventricular failure [Unknown]
  - Gastrointestinal haemorrhage [Unknown]
  - Acute kidney injury [Not Recovered/Not Resolved]
  - Uraemic encephalopathy [Unknown]

NARRATIVE: CASE EVENT DATE: 20210220
